FAERS Safety Report 9461359 (Version 1)
Quarter: 2013Q3

REPORT INFORMATION
  Report Type: Spontaneous
  Country: DE (occurrence: DE)
  Receive Date: 20130816
  Receipt Date: 20130816
  Transmission Date: 20140515
  Serious: Yes (Disabling)
  Sender: FDA-Public Use
  Company Number: DE-ACCORD-018937

PATIENT
  Age: 61 Year
  Sex: Female

DRUGS (3)
  1. LETROZOLE [Suspect]
     Indication: BREAST CANCER
     Route: 048
     Dates: start: 20130702
  2. TAMOXIFEN [Concomitant]
  3. ENTOCORT [Concomitant]

REACTIONS (2)
  - Visual impairment [Recovering/Resolving]
  - Paraesthesia [Not Recovered/Not Resolved]
